FAERS Safety Report 22011671 (Version 1)
Quarter: 2023Q1

REPORT INFORMATION
  Report Type: Spontaneous
  Country: US (occurrence: US)
  Receive Date: 20230220
  Receipt Date: 20230220
  Transmission Date: 20230417
  Serious: Yes (Other)
  Sender: FDA-Public Use
  Company Number: US-BRISTOL-MYERS SQUIBB COMPANY-2023-022956

PATIENT
  Age: 70 Year
  Sex: Male
  Weight: 97.48 kg

DRUGS (1)
  1. REVLIMID [Suspect]
     Active Substance: LENALIDOMIDE
     Indication: Lymphoma
     Dosage: 3W, 1W OFF
     Route: 048

REACTIONS (2)
  - Malignant neoplasm progression [Unknown]
  - Pain [Unknown]
